FAERS Safety Report 9996092 (Version 1)
Quarter: 2014Q1

REPORT INFORMATION
  Report Type: Spontaneous
  Country: US (occurrence: None)
  Receive Date: 20140218
  Receipt Date: 20140218
  Transmission Date: 20141002
  Serious: Yes (Other)
  Sender: FDA-Public Use
  Company Number: 1000050492

PATIENT
  Age: 48 Year
  Sex: Female

DRUGS (17)
  1. VIIBRYD [Suspect]
     Indication: DEPRESSION
     Dosage: 40MG (40 MG, 1 IN 1 D), ORAL
     Route: 048
     Dates: start: 20131015
  2. ASPIRIN (ACETYLSALICYLIC ACID) (ACETYLSALICYLIC ACID) [Concomitant]
  3. SEROQUEL (QUETIAPINE FUMARATE) (QUETIAPINE FUMARATE) [Concomitant]
  4. HYDROCHLOROTHIAZIDE (HYDROCHLOROTHIAZIDE) (HYDORCHLOROTHIAZIDE) [Concomitant]
  5. NALTREXONE (NALTREXONE) (NALTREXONE) [Concomitant]
  6. LIPITOR (ATORVASTATIN CALCIUM) (ATORVASTATIN CALCIUM) [Concomitant]
  7. TEGRETOL (CARBAMAZEPINE) (CARBAMAZEPINE) [Concomitant]
  8. KLONOPIN (CLONAZEPAM) (CLONAZEPAM) [Concomitant]
  9. LISINOPRIL (LISINOPRIL) (LISINOPRIL) [Concomitant]
  10. FLONASE (FLUTICASONE PROPIONATE) (FLUTICASONE PROPIONATE) [Concomitant]
  11. MAGNESIUM CHLORIDE (MAGNESIUM CHLORIDE) (MAGNESIUM CHLORIDE) [Concomitant]
  12. NAPROXEN (NAPROXEN) (NAPROXEN) [Concomitant]
  13. IMITREX (SUMATRIPTAN) (SUMATRIPTAN) [Concomitant]
  14. METOCLOPRAMIDE (METOCLOPRAMIDE) (METOCLOPRAMIDE) [Concomitant]
  15. TRAZODONE (TRAZODONE) (TRAZODONE) [Concomitant]
  16. VERAPAMIL (VERAPAMIL) (VERAPAMIL0 [Concomitant]
  17. PANTOPRAZOLE (PANTOPRAZOLE) (PANTOPRAZOLE) [Concomitant]

REACTIONS (2)
  - Myalgia [None]
  - Arthralgia [None]
